FAERS Safety Report 20803278 (Version 1)
Quarter: 2022Q2

REPORT INFORMATION
  Report Type: Spontaneous
  Country: US (occurrence: US)
  Receive Date: 20220509
  Receipt Date: 20220509
  Transmission Date: 20220721
  Serious: No
  Sender: FDA-Public Use
  Company Number: US-ELI_LILLY_AND_COMPANY-US202205002487

PATIENT
  Age: 74 Year
  Sex: Male

DRUGS (1)
  1. BEBTELOVIMAB [Suspect]
     Active Substance: BEBTELOVIMAB
     Indication: Product used for unknown indication
     Dosage: UNK UNK, SINGLE
     Route: 065
     Dates: start: 20220504, end: 20220504

REACTIONS (2)
  - Fatigue [Not Recovered/Not Resolved]
  - Hyperhidrosis [Recovered/Resolved]

NARRATIVE: CASE EVENT DATE: 20220505
